FAERS Safety Report 18665707 (Version 2)
Quarter: 2021Q2

REPORT INFORMATION
  Report Type: Spontaneous
  Country: JP (occurrence: JP)
  Receive Date: 20201226
  Receipt Date: 20210520
  Transmission Date: 20210717
  Serious: Yes (Other)
  Sender: FDA-Public Use
  Company Number: JP-JNJFOC-20201234771

PATIENT
  Age: 75 Year
  Sex: Female
  Weight: 53.4 kg

DRUGS (8)
  1. XARELTO [Suspect]
     Active Substance: RIVAROXABAN
     Indication: ATRIAL FIBRILLATION
     Dosage: 15 MG, QD
     Route: 048
     Dates: start: 20200818, end: 20200914
  2. URSODEOXYCHOLIC ACID [Concomitant]
     Active Substance: URSODIOL
     Dosage: 600MG
     Dates: start: 201901
  3. BISOPROLOL [Concomitant]
     Active Substance: BISOPROLOL
     Dosage: 2.5MG
     Dates: start: 2016
  4. ATORVASTATIN [Concomitant]
     Active Substance: ATORVASTATIN
     Dosage: 20MG
     Dates: start: 2016
  5. CARVEDILOL. [Concomitant]
     Active Substance: CARVEDILOL
     Dosage: 1.25MG
     Dates: start: 2016
  6. CARVEDILOL. [Concomitant]
     Active Substance: CARVEDILOL
     Dosage: 2.5MG
     Dates: start: 2016
  7. ZETIA [Concomitant]
     Active Substance: EZETIMIBE
     Dosage: 10MG
     Dates: start: 2016
  8. FUROSEMIDE. [Concomitant]
     Active Substance: FUROSEMIDE
     Dosage: 20MG
     Dates: start: 20200814

REACTIONS (6)
  - Interstitial lung disease [Recovered/Resolved]
  - Dyspnoea exertional [Recovered/Resolved]
  - Cough [Recovered/Resolved]
  - Hepatic cyst [Not Recovered/Not Resolved]
  - Haematuria [Recovered/Resolved]
  - Crepitations [Recovered/Resolved]

NARRATIVE: CASE EVENT DATE: 20200901
